FAERS Safety Report 16581912 (Version 2)
Quarter: 2019Q4

REPORT INFORMATION
  Report Type: Spontaneous
  Country: JP (occurrence: JP)
  Receive Date: 20190716
  Receipt Date: 20191104
  Transmission Date: 20200122
  Serious: Yes (Hospitalization)
  Sender: FDA-Public Use
  Company Number: JP-ROCHE-2317846

PATIENT
  Age: 60 Year
  Sex: Female
  Weight: 56 kg

DRUGS (6)
  1. FASLODEX [Concomitant]
     Active Substance: FULVESTRANT
     Route: 065
     Dates: start: 20190315
  2. METHYCOBAL [Suspect]
     Active Substance: METHYLCOBALAMIN
     Indication: BREAST CANCER
     Route: 048
     Dates: start: 20180119, end: 20181210
  3. LYRICA [Suspect]
     Active Substance: PREGABALIN
     Indication: BREAST CANCER
     Route: 048
     Dates: start: 20171115, end: 20190125
  4. AVASTIN [Suspect]
     Active Substance: BEVACIZUMAB
     Indication: BREAST CANCER
     Route: 041
     Dates: start: 20171016, end: 20190125
  5. IBRANCE [Concomitant]
     Active Substance: PALBOCICLIB
     Route: 065
     Dates: start: 20190315
  6. FASLODEX [Concomitant]
     Active Substance: FULVESTRANT
     Indication: BREAST CANCER
     Route: 065
     Dates: start: 2015, end: 20150605

REACTIONS (7)
  - Hypoaesthesia [Unknown]
  - Cardiomyopathy [Recovered/Resolved]
  - Epistaxis [Unknown]
  - Cardiac failure [Recovered/Resolved]
  - Cough [Unknown]
  - Nail disorder [Unknown]
  - Cystitis [Recovered/Resolved]

NARRATIVE: CASE EVENT DATE: 20181023
